FAERS Safety Report 6189276-0 (Version None)
Quarter: 2009Q2

REPORT INFORMATION
  Report Type: 
  Country: None (occurrence: None)
  Receive Date: 20090513
  Receipt Date: 20090428
  Transmission Date: 20091009
  Serious: Yes (Hospitalization)
  Sender: FDA-Public Use
  Company Number: FR-GENENTECH-282666

PATIENT
  Sex: Male

DRUGS (7)
  1. RITUXIMAB [Suspect]
     Indication: CHRONIC LYMPHOCYTIC LEUKAEMIA
     Dosage: 923 MG, QD
     Route: 041
     Dates: start: 20081029, end: 20081029
  2. FLUDARABINE PHOSPHATE [Suspect]
     Indication: CHRONIC LYMPHOCYTIC LEUKAEMIA
     Dosage: 75 NG, QD
     Route: 048
     Dates: start: 20081030, end: 20081101
  3. CYCLOPHOSPHAMIDE [Suspect]
     Indication: CHRONIC LYMPHOCYTIC LEUKAEMIA
     Dosage: 463 MG, QD
     Route: 048
     Dates: start: 20081030, end: 20081101
  4. TAHOR [Concomitant]
     Indication: DRUG USE FOR UNKNOWN INDICATION
  5. GLUCOR [Concomitant]
     Indication: DRUG USE FOR UNKNOWN INDICATION
  6. GLUCOPHAGE [Concomitant]
     Indication: DRUG USE FOR UNKNOWN INDICATION
  7. NOVONORM [Concomitant]
     Indication: DRUG USE FOR UNKNOWN INDICATION

REACTIONS (2)
  - DIABETES MELLITUS INADEQUATE CONTROL [None]
  - RENAL FAILURE ACUTE [None]
